FAERS Safety Report 9356951 (Version 2)
Quarter: 2013Q2

REPORT INFORMATION
  Report Type: Spontaneous
  Country: AU (occurrence: AU)
  Receive Date: 20130620
  Receipt Date: 20130624
  Transmission Date: 20140414
  Serious: Yes (Hospitalization, Other)
  Sender: FDA-Public Use
  Company Number: AU-ROCHE-1238781

PATIENT
  Age: 14 Year
  Sex: Female

DRUGS (2)
  1. ROACCUTANE [Suspect]
     Indication: ACNE CYSTIC
     Route: 048
     Dates: start: 20130611
  2. ROACCUTANE [Suspect]
     Dosage: 60 CAPSULES
     Route: 065

REACTIONS (2)
  - Intentional self-injury [Recovered/Resolved]
  - Intentional overdose [Unknown]
